FAERS Safety Report 21157852 (Version 1)
Quarter: 2022Q3

REPORT INFORMATION
  Report Type: Report from Study
  Country: CN (occurrence: CN)
  Receive Date: 20220801
  Receipt Date: 20220801
  Transmission Date: 20221026
  Serious: Yes (Other)
  Sender: FDA-Public Use
  Company Number: CN-NOVARTISPH-NVSC2022CN039052

PATIENT
  Age: 12 Year
  Sex: Male

DRUGS (3)
  1. FINGOLIMOD [Suspect]
     Active Substance: FINGOLIMOD
     Indication: Relapsing multiple sclerosis
     Dosage: UNK
     Route: 048
     Dates: start: 20210507
  2. LITHIUM CARBONATE [Concomitant]
     Active Substance: LITHIUM CARBONATE
     Indication: Mood disorder due to a general medical condition
     Dosage: UNK
     Route: 065
     Dates: start: 20200418
  3. RISPERIDONE [Concomitant]
     Active Substance: RISPERIDONE
     Indication: Mood disorder due to a general medical condition
     Dosage: UNK
     Route: 065
     Dates: start: 20210513

REACTIONS (1)
  - Lymphopenia [Not Recovered/Not Resolved]

NARRATIVE: CASE EVENT DATE: 20210605
